FAERS Safety Report 18318264 (Version 1)
Quarter: 2020Q3

REPORT INFORMATION
  Report Type: Spontaneous
  Country: DE (occurrence: DE)
  Receive Date: 20200928
  Receipt Date: 20200928
  Transmission Date: 20201103
  Serious: Yes (Hospitalization)
  Sender: FDA-Public Use
  Company Number: DE-TEVA-2020-DE-1831809

PATIENT
  Age: 60 Year
  Sex: Female
  Weight: 53 kg

DRUGS (8)
  1. BUDESONIDE. [Suspect]
     Active Substance: BUDESONIDE
     Dosage: 2 DOSAGE FORMS DAILY; NK MICROG, 1?0?1?0, UNIT DOSE : 1 DOSAGE FORMS
     Route: 055
  2. PREGABALIN. [Concomitant]
     Active Substance: PREGABALIN
     Dosage: 3 DOSAGE FORMS DAILY; 100 MG, 1.5?0?1.5?0
     Route: 048
  3. RAMIPRIL. [Concomitant]
     Active Substance: RAMIPRIL
     Dosage: 5 MILLIGRAM DAILY; 1?0?0?0
     Route: 048
  4. SPIRIVA [Suspect]
     Active Substance: TIOTROPIUM BROMIDE MONOHYDRATE
     Dosage: 1 DOSAGE FORMS DAILY; NK MICROG, 1?0?0?0
     Route: 055
  5. PANTOPRAZOL [Concomitant]
     Active Substance: PANTOPRAZOLE SODIUM
     Dosage: 40 MILLIGRAM DAILY; 1?0?0?0
     Route: 048
  6. COLECALCIFEROL (VITAMIN D) [Concomitant]
     Dosage: UNIT DOSE : 20,000 IU / WEEK, 1X
     Route: 048
  7. CALCIUM 500 DURA [Concomitant]
     Dosage: 500 MILLIGRAM DAILY; 1?0?0?0
     Route: 048
  8. METAMIZOL [Concomitant]
     Active Substance: METAMIZOLE SODIUM
     Dosage: 2000 MILLIGRAM DAILY; UNIT DOSE : 500 MG, 1?1?1?1
     Route: 048

REACTIONS (7)
  - Tachycardia [Recovering/Resolving]
  - Painful respiration [Recovering/Resolving]
  - Hypotension [Recovering/Resolving]
  - Angina pectoris [Recovering/Resolving]
  - Chest pain [Recovering/Resolving]
  - General physical health deterioration [Recovering/Resolving]
  - Weight decreased [Recovering/Resolving]
